FAERS Safety Report 6734601-2 (Version None)
Quarter: 2010Q2

REPORT INFORMATION
  Report Type: 
  Country: None (occurrence: None)
  Receive Date: 20100519
  Receipt Date: 20100512
  Transmission Date: 20101027
  Serious: Yes (Other)
  Sender: FDA-Public Use
  Company Number: A0859321A

PATIENT
  Age: 62 Year
  Sex: Male

DRUGS (1)
  1. UREA PEROXIDE [Suspect]
     Indication: CERUMEN IMPACTION
     Dosage: SINGLE DOSE/ EAR DROPS
     Dates: start: 20100511, end: 20100511

REACTIONS (3)
  - DEAFNESS UNILATERAL [None]
  - DRUG INEFFECTIVE [None]
  - EAR DISCOMFORT [None]
